FAERS Safety Report 25997055 (Version 1)
Quarter: 2025Q4

REPORT INFORMATION
  Report Type: Spontaneous
  Country: US (occurrence: None)
  Receive Date: 20251104
  Receipt Date: 20251104
  Transmission Date: 20260118
  Serious: Yes (Hospitalization)
  Sender: FDA-CTU
  Company Number: None

PATIENT
  Age: 40 Year
  Sex: Male
  Weight: 72 kg

DRUGS (12)
  1. 7-HYDROXYMITRAGYNINE [Suspect]
     Active Substance: 7-HYDROXYMITRAGYNINE
     Indication: Pain
     Dosage: OTHER QUANTITY : 1 TABLET(S);?FREQUENCY : AS NEEDED;?
     Route: 048
     Dates: start: 20251001, end: 20251004
  2. 7-HYDROXYMITRAGYNINE [Suspect]
     Active Substance: 7-HYDROXYMITRAGYNINE
     Indication: Foot fracture
  3. 7-HYDROXYMITRAGYNINE [Suspect]
     Active Substance: 7-HYDROXYMITRAGYNINE
     Indication: COVID-19
  4. 7-HYDROXYMITRAGYNINE [Suspect]
     Active Substance: 7-HYDROXYMITRAGYNINE
  5. Tadalafil 10mg / day [Concomitant]
  6. Guanfacine 4mg / day [Concomitant]
  7. Venlafaxine 225mg / day [Concomitant]
  8. Hydroxyzine 100mg / day [Concomitant]
  9. Olanzapine 20mg / day [Concomitant]
  10. Finasteride 1mg / day [Concomitant]
  11. POTASSIUM [Concomitant]
     Active Substance: POTASSIUM
  12. general adult ^multi-vitamin^ gummies [Concomitant]

REACTIONS (2)
  - Acute psychosis [None]
  - Product complaint [None]

NARRATIVE: CASE EVENT DATE: 20251004
